FAERS Safety Report 11950904 (Version 1)
Quarter: 2016Q1

REPORT INFORMATION
  Report Type: Spontaneous
  Country: US (occurrence: None)
  Receive Date: 20160122
  Receipt Date: 20160122
  Transmission Date: 20160526
  Serious: No
  Sender: FDA-Public Use
  Company Number: None

PATIENT

DRUGS (2)
  1. BLOXIVERZ [Suspect]
     Active Substance: NEOSTIGMINE METHYLSULFATE
     Dosage: INJECTABLE, INTRAVENOUS, 5MG/10ML, MULTIPLE DOSE VIAL, SIZE: 10 ML
  2. VAZCULEP [Suspect]
     Active Substance: PHENYLEPHRINE HYDROCHLORIDE
     Dosage: INJECTABLE, INTRAVENOUS, 50 MG/5 ML, VIAL, SIZE: 5ML

REACTIONS (2)
  - Intercepted drug dispensing error [None]
  - Product packaging confusion [None]
